FAERS Safety Report 10446592 (Version 1)
Quarter: 2014Q3

REPORT INFORMATION
  Report Type: Spontaneous
  Country: US (occurrence: None)
  Receive Date: 20140910
  Receipt Date: 20140910
  Transmission Date: 20150326
  Serious: Yes (Disabling, Other)
  Sender: FDA-Public Use
  Company Number: None

PATIENT
  Age: 58 Year
  Sex: Female
  Weight: 52.16 kg

DRUGS (1)
  1. EQUATE ALLERGY RELIEF [Suspect]
     Active Substance: CETIRIZINE HYDROCHLORIDE\DIPHENHYDRAMINE HYDROCHLORIDE\FEXOFENADINE HYDROCHLORIDE\LORATADINE
     Indication: HYPERSENSITIVITY
     Dosage: 1 PILL, EVERY 4 HOURS, TAKEN BY MOUTH?
     Route: 048
     Dates: start: 20140715, end: 20140821

REACTIONS (4)
  - Condition aggravated [None]
  - Angioedema [None]
  - Urticaria [None]
  - Decreased appetite [None]

NARRATIVE: CASE EVENT DATE: 20140715
